FAERS Safety Report 23268564 (Version 1)
Quarter: 2023Q4

REPORT INFORMATION
  Report Type: Spontaneous
  Country: IL (occurrence: IL)
  Receive Date: 20231206
  Receipt Date: 20231206
  Transmission Date: 20240110
  Serious: Yes (Life-Threatening, Hospitalization, Other)
  Sender: FDA-Public Use
  Company Number: IL-MLMSERVICE-20231124-4688516-1

PATIENT
  Age: 66 Year
  Sex: Male

DRUGS (1)
  1. NAPROXEN SODIUM [Suspect]
     Active Substance: NAPROXEN\NAPROXEN SODIUM
     Indication: Peripheral swelling
     Dosage: 500 MG, UNK
     Route: 048

REACTIONS (5)
  - Purpura fulminans [Recovered/Resolved]
  - Hypersensitivity vasculitis [Recovered/Resolved]
  - Pancytopenia [Recovered/Resolved]
  - Acute kidney injury [Recovering/Resolving]
  - Henoch-Schonlein purpura [Recovered/Resolved]
